FAERS Safety Report 22179344 (Version 1)
Quarter: 2023Q2

REPORT INFORMATION
  Report Type: Spontaneous
  Country: GB (occurrence: GB)
  Receive Date: 20230406
  Receipt Date: 20230406
  Transmission Date: 20230721
  Serious: No
  Sender: FDA-Public Use
  Company Number: None

PATIENT
  Age: 51 Year
  Sex: Female
  Weight: 97 kg

DRUGS (11)
  1. IBUPROFEN [Suspect]
     Active Substance: IBUPROFEN
     Indication: Ill-defined disorder
     Dosage: UNK
     Route: 065
     Dates: start: 20230220
  2. BECLOMETHASONE DIPROPIONATE [Concomitant]
     Active Substance: BECLOMETHASONE DIPROPIONATE
     Indication: Ill-defined disorder
     Dosage: UNK, BID (INHALE 2 DOSES TWICE DAILY)
     Dates: start: 20230116
  3. CODEINE PHOSPHATE [Concomitant]
     Active Substance: CODEINE PHOSPHATE
     Indication: Ill-defined disorder
     Dosage: UNK, QID (TAKE ONE OR TWO 4 TIMES/DAY WITH PARACETAMOL)
     Route: 065
     Dates: start: 20230116, end: 20230123
  4. ESTRADIOL [Concomitant]
     Active Substance: ESTRADIOL
     Indication: Ill-defined disorder
     Dosage: UNK, QD (TAKE ONE DAILY)
     Route: 065
     Dates: start: 20230103
  5. LANSOPRAZOLE [Concomitant]
     Active Substance: LANSOPRAZOLE
     Indication: Ill-defined disorder
     Dosage: UNK, BID (1 BD)
     Route: 065
     Dates: start: 20220202
  6. LEVOTHYROXINE [Concomitant]
     Active Substance: LEVOTHYROXINE
     Indication: Ill-defined disorder
     Dosage: UNK, QD (TAKE ONE EACH MORNING)
     Route: 065
     Dates: start: 20220202
  7. ACETAMINOPHEN\BUCLIZINE HYDROCHLORIDE\CODEINE [Concomitant]
     Active Substance: ACETAMINOPHEN\BUCLIZINE HYDROCHLORIDE\CODEINE
     Indication: Ill-defined disorder
     Dosage: UNK (USE AS DIRECTED)
     Route: 065
     Dates: start: 20230116, end: 20230130
  8. ALBUTEROL [Concomitant]
     Active Substance: ALBUTEROL
     Indication: Ill-defined disorder
     Dosage: UNK, PRN (INHALE 1-2 DOSES AS NEEDED)
     Dates: start: 20230116, end: 20230210
  9. TRAMADOL [Concomitant]
     Active Substance: TRAMADOL
     Indication: Ill-defined disorder
     Dosage: UNK (TAKE 1 OR 2 EVERY 4-6 HRS (USUAL MAXIMUM DOSE A...)
     Route: 065
     Dates: start: 20230207, end: 20230214
  10. TRAZODONE [Concomitant]
     Active Substance: TRAZODONE HYDROCHLORIDE
     Indication: Ill-defined disorder
     Dosage: 2 DOSAGE FORM, HS (TAKE TWO CAPSULES EACH NIGHT)
     Route: 065
     Dates: start: 20230116, end: 20230213
  11. ZOLMITRIPTAN [Concomitant]
     Active Substance: ZOLMITRIPTAN
     Indication: Ill-defined disorder
     Dosage: UNK (TAKE ONE AS DIRECTED)
     Route: 065
     Dates: start: 20220202

REACTIONS (1)
  - Nausea [Recovered/Resolved]

NARRATIVE: CASE EVENT DATE: 20230301
